FAERS Safety Report 9868661 (Version 1)
Quarter: 2014Q1

REPORT INFORMATION
  Report Type: Report from Study
  Country: US (occurrence: US)
  Receive Date: 20140204
  Receipt Date: 20140204
  Transmission Date: 20141002
  Serious: Yes (Hospitalization)
  Sender: FDA-Public Use
  Company Number: US-B.I. PHARMACEUTICALS,INC./RIDGEFIELD-2014-BI-04555BP

PATIENT
  Sex: Male

DRUGS (3)
  1. SPIRIVA [Suspect]
     Indication: CHRONIC OBSTRUCTIVE PULMONARY DISEASE
     Dosage: QD
     Route: 065
     Dates: start: 20130103
  2. ALBUTEROL [Concomitant]
  3. SYMBICORT [Concomitant]

REACTIONS (2)
  - Chronic obstructive pulmonary disease [Unknown]
  - Impaired self-care [Unknown]
